FAERS Safety Report 24853741 (Version 1)
Quarter: 2025Q1

REPORT INFORMATION
  Report Type: Spontaneous
  Country: US (occurrence: US)
  Receive Date: 20250117
  Receipt Date: 20250117
  Transmission Date: 20250409
  Serious: No
  Sender: BLUEPRINT MEDICINES
  Company Number: US-Blueprint Medicines Corporation-2025-AER-00067

PATIENT
  Age: 70 Year
  Sex: Female

DRUGS (3)
  1. AYVAKIT [Suspect]
     Active Substance: AVAPRITINIB
     Indication: Mastocytoma
     Route: 065
     Dates: start: 202210
  2. MAGNESIUM [Suspect]
     Active Substance: MAGNESIUM
     Indication: Gastrointestinal disorder
  3. OCTREOTIDE [Suspect]
     Active Substance: OCTREOTIDE
     Indication: Gastrointestinal disorder

REACTIONS (3)
  - Diarrhoea [Unknown]
  - Short-bowel syndrome [Unknown]
  - Off label use [Unknown]
